FAERS Safety Report 6330521-6 (Version None)
Quarter: 2009Q3

REPORT INFORMATION
  Report Type: 
  Country: None (occurrence: None)
  Receive Date: 20090827
  Receipt Date: 20090414
  Transmission Date: 20100115
  Serious: No
  Sender: FDA-Public Use
  Company Number: A0778728A

PATIENT
  Sex: Female

DRUGS (1)
  1. ACYCLOVIR [Suspect]
     Route: 048

REACTIONS (3)
  - HEART RATE INCREASED [None]
  - NERVOUSNESS [None]
  - VISION BLURRED [None]
